FAERS Safety Report 5056252-0 (Version None)
Quarter: 2006Q2

REPORT INFORMATION
  Report Type: 
  Country: None (occurrence: None)
  Receive Date: 20060616
  Receipt Date: 20060406
  Transmission Date: 20061013
  Serious: Yes (Hospitalization)
  Sender: FDA-Public Use
  Company Number: 200519439US

PATIENT
  Sex: Female

DRUGS (2)
  1. LANTUS [Suspect]
     Dosage: INJ
     Route: 042
  2. OPTICLIK [Suspect]

REACTIONS (1)
  - BLOOD GLUCOSE INCREASED [None]
